FAERS Safety Report 21094060 (Version 2)
Quarter: 2022Q3

REPORT INFORMATION
  Report Type: Spontaneous
  Country: JP (occurrence: JP)
  Receive Date: 20220718
  Receipt Date: 20220914
  Transmission Date: 20221027
  Serious: Yes (Other)
  Sender: FDA-Public Use
  Company Number: JP-JNJFOC-20220728542

PATIENT
  Sex: Female

DRUGS (2)
  1. OPSUMIT [Suspect]
     Active Substance: MACITENTAN
     Indication: Pulmonary vascular disorder
     Route: 048
     Dates: start: 20220621
  2. OPSUMIT [Suspect]
     Active Substance: MACITENTAN
     Indication: Vascular resistance pulmonary

REACTIONS (2)
  - Hepatic cirrhosis [Unknown]
  - Off label use [Unknown]

NARRATIVE: CASE EVENT DATE: 20220101
